FAERS Safety Report 19504644 (Version 3)
Quarter: 2021Q3

REPORT INFORMATION
  Report Type: Spontaneous
  Country: US (occurrence: US)
  Receive Date: 20210708
  Receipt Date: 20210724
  Transmission Date: 20211014
  Serious: Yes (Hospitalization, Other)
  Sender: FDA-Public Use
  Company Number: US-UNITED THERAPEUTICS-UNT-2021-012263

PATIENT
  Age: 68 Year
  Sex: Male
  Weight: 108.98 kg

DRUGS (4)
  1. REMODULIN [Suspect]
     Active Substance: TREPROSTINIL
     Dosage: 0.026 ?G/KG, CONTINUING
     Route: 058
     Dates: start: 2021
  2. SILDENAFIL. [Concomitant]
     Active Substance: SILDENAFIL
     Indication: PRODUCT USED FOR UNKNOWN INDICATION
     Dosage: 10 MG, TID
     Route: 065
  3. OFEV [Concomitant]
     Active Substance: NINTEDANIB
     Indication: PRODUCT USED FOR UNKNOWN INDICATION
     Dosage: UNK
     Route: 065
  4. REMODULIN [Suspect]
     Active Substance: TREPROSTINIL
     Indication: PULMONARY ARTERIAL HYPERTENSION
     Dosage: UNK, CONTINUING
     Route: 058
     Dates: start: 20210507

REACTIONS (11)
  - Infusion site erythema [Recovered/Resolved]
  - Fluid retention [Unknown]
  - Oxygen saturation decreased [Unknown]
  - Fall [Recovered/Resolved with Sequelae]
  - Unintentional medical device removal [Recovered/Resolved]
  - Infusion site pain [Recovered/Resolved]
  - Chronic obstructive pulmonary disease [Unknown]
  - Cardiac failure acute [Unknown]
  - Acute myocardial infarction [Unknown]
  - Dyspnoea [Recovered/Resolved]
  - Hypoxia [Unknown]

NARRATIVE: CASE EVENT DATE: 2021
